FAERS Safety Report 9207320 (Version 3)
Quarter: 2013Q2

REPORT INFORMATION
  Report Type: Report from Study
  Country: IT (occurrence: IT)
  Receive Date: 20130403
  Receipt Date: 20130628
  Transmission Date: 20140414
  Serious: Yes (Other)
  Sender: FDA-Public Use
  Company Number: IT-ASTRAZENECA-2013SE16408

PATIENT
  Age: 22918 Day
  Sex: Male

DRUGS (8)
  1. AZD6140 [Suspect]
     Indication: CORONARY ARTERY DISEASE
     Route: 048
     Dates: start: 20111219, end: 20130226
  2. TRIATEC [Concomitant]
     Indication: HYPERTENSION
     Route: 048
  3. BISOPROLOL [Concomitant]
     Indication: CARDIOVASCULAR DISORDER
     Route: 048
  4. SEACOR [Concomitant]
     Indication: BLOOD TRIGLYCERIDES
     Route: 048
  5. LANSOPRAZOLE [Concomitant]
     Indication: GASTRIC PH DECREASED
     Route: 048
  6. FENOFIBRATO [Concomitant]
     Indication: LIPIDS INCREASED
     Route: 048
  7. METFORMINA [Concomitant]
     Indication: BLOOD GLUCOSE INCREASED
     Route: 048
  8. ASA [Concomitant]
     Route: 048

REACTIONS (1)
  - Joint injury [Recovered/Resolved]
